FAERS Safety Report 13937804 (Version 2)
Quarter: 2017Q3

REPORT INFORMATION
  Report Type: Spontaneous
  Country: US (occurrence: US)
  Receive Date: 20170905
  Receipt Date: 20170921
  Transmission Date: 20171127
  Serious: No
  Sender: FDA-Public Use
  Company Number: US-PFIZER INC-2017376237

PATIENT
  Age: 75 Year
  Sex: Female

DRUGS (18)
  1. ASPIR 81 [Concomitant]
     Dosage: 81 MG, UNK
  2. ERYTHROMYCIN. [Concomitant]
     Active Substance: ERYTHROMYCIN
     Dosage: UNK, 5MG/G
  3. LETROZOLE. [Concomitant]
     Active Substance: LETROZOLE
     Dosage: 2.5 MG, UNK
  4. TIMOLOL MALEATE. [Concomitant]
     Active Substance: TIMOLOL MALEATE
     Dosage: 0.5 %, UNK
     Route: 047
  5. HYDROCO/APAP [Concomitant]
     Active Substance: ACETAMINOPHEN\HYDROCODONE
     Dosage: UNK
  6. LATANOPROST. [Concomitant]
     Active Substance: LATANOPROST
     Dosage: 0.005 %, UNK
  7. METOPROLOL. [Concomitant]
     Active Substance: METOPROLOL
     Dosage: 50 MG, UNK
  8. ONDANSETRON [Concomitant]
     Active Substance: ONDANSETRON
     Dosage: 8 MG, UNK
  9. PROCHLORPER [Concomitant]
     Dosage: 10 MG, UNK
  10. BRIMONIDINE [Concomitant]
     Active Substance: BRIMONIDINE TARTRATE
     Dosage: 0.15 %, UNK
  11. CYCLOBENZAPR [Concomitant]
     Active Substance: CYCLOBENZAPRINE
     Dosage: 10 MG, UNK
  12. FLUVIRINE [Concomitant]
     Dosage: UNK
     Dates: start: 2016
  13. IBRANCE [Suspect]
     Active Substance: PALBOCICLIB
     Indication: BREAST CANCER FEMALE
     Dosage: 125 MG, CYCLIC (1 CAPSULE BY MOUTH DAILY FOR 21 DAYS THEN HOLD FOR 7 DAYS AND RESTART)
     Route: 048
     Dates: start: 20170328
  14. DORZOLAMIDE [Concomitant]
     Active Substance: DORZOLAMIDE
     Dosage: 2 %, UNK
     Route: 047
  15. ISOSORB MONO [Concomitant]
     Active Substance: ISOSORBIDE MONONITRATE
     Dosage: 30 MG, UNK
  16. XGEVA [Concomitant]
     Active Substance: DENOSUMAB
     Dosage: UNK
  17. ATORVASTATIN [Concomitant]
     Active Substance: ATORVASTATIN
     Dosage: 10 MG, UNK
  18. LIDOCAINE-PR [Concomitant]
     Dosage: UNK

REACTIONS (1)
  - Depression [Not Recovered/Not Resolved]

NARRATIVE: CASE EVENT DATE: 2017
